FAERS Safety Report 5075183-3 (Version None)
Quarter: 2006Q3

REPORT INFORMATION
  Report Type: 
  Country: None (occurrence: None)
  Receive Date: 20060809
  Receipt Date: 20051003
  Transmission Date: 20061208
  Serious: Yes (Other)
  Sender: FDA-Public Use
  Company Number: US-AMGEN-KDL153120

PATIENT
  Sex: Female
  Weight: 133 kg

DRUGS (6)
  1. PROCRIT [Suspect]
     Indication: ANAEMIA OF MALIGNANT DISEASE
     Route: 058
     Dates: start: 20020801, end: 20030901
  2. LOMOTIL [Concomitant]
  3. PHENERGAN HCL [Concomitant]
  4. BISOPROLOL FUMARATE [Concomitant]
  5. ALDACTAZIDE [Concomitant]
  6. COUMADIN [Concomitant]

REACTIONS (5)
  - DIARRHOEA [None]
  - OEDEMA [None]
  - OVARIAN CANCER [None]
  - PARAESTHESIA [None]
  - PULMONARY EMBOLISM [None]
